FAERS Safety Report 6746031-8 (Version None)
Quarter: 2010Q2

REPORT INFORMATION
  Report Type: 
  Country: None (occurrence: None)
  Receive Date: 20100528
  Receipt Date: 20100516
  Transmission Date: 20101027
  Serious: Yes (Disabling)
  Sender: FDA-Public Use
  Company Number: US-ELI_LILLY_AND_COMPANY-US201005005009

PATIENT
  Sex: Female

DRUGS (1)
  1. FORTEO [Suspect]

REACTIONS (6)
  - ABASIA [None]
  - DEPRESSION [None]
  - HEADACHE [None]
  - MUSCLE DISORDER [None]
  - MUSCLE SPASMS [None]
  - VISUAL IMPAIRMENT [None]
